FAERS Safety Report 20482024 (Version 1)
Quarter: 2022Q1

REPORT INFORMATION
  Report Type: Spontaneous
  Country: US (occurrence: US)
  Receive Date: 20220216
  Receipt Date: 20220216
  Transmission Date: 20220423
  Serious: Yes (Hospitalization)
  Sender: FDA-Public Use
  Company Number: US-JAZZ-2021-US-011979

PATIENT
  Age: 61 Year
  Sex: Male
  Weight: 116.4 kg

DRUGS (11)
  1. ZEPZELCA [Suspect]
     Active Substance: LURBINECTEDIN
     Indication: Small cell lung cancer
     Dosage: 7.8 MILLIGRAM
     Route: 042
     Dates: start: 20210422, end: 20210422
  2. ZEPZELCA [Suspect]
     Active Substance: LURBINECTEDIN
     Dosage: 7.8 MILLIGRAM
     Route: 042
     Dates: start: 20210513, end: 20210513
  3. ACETAMINOPHEN\OXYCODONE HYDROCHLORIDE\OXYCODONE TEREPHTHALATE [Suspect]
     Active Substance: ACETAMINOPHEN\OXYCODONE HYDROCHLORIDE\OXYCODONE TEREPHTHALATE
     Dosage: 10-325 MILLIGRAM, PRN
     Dates: start: 20210329
  4. ALBUTEROL SULFATE [Concomitant]
     Active Substance: ALBUTEROL SULFATE
     Dosage: 2 PUFFS PRN
     Dates: start: 20201229
  5. AMITIZA [Concomitant]
     Active Substance: LUBIPROSTONE
     Dosage: 24 MICROGRAM, BID
     Route: 048
     Dates: start: 20210419
  6. ASPIRIN [Concomitant]
     Active Substance: ASPIRIN
     Dosage: 81 MILLIGRAM
     Route: 048
     Dates: start: 20200928
  7. ATORVASTATIN [Concomitant]
     Active Substance: ATORVASTATIN
     Dosage: 40 MILLIGRAM, QD
     Dates: start: 20200928
  8. LORAZEPAM [Concomitant]
     Active Substance: LORAZEPAM
     Dosage: 1 MILLIGRAM, PRN
     Route: 048
     Dates: start: 20210412
  9. ALLOPURINOL [Concomitant]
     Active Substance: ALLOPURINOL
     Dosage: 10 MILLIGRAM, BID
     Route: 048
     Dates: start: 20210419
  10. MS CONTIN DAINIPPO [Concomitant]
     Dosage: 15 MILLIGRAM, BID
     Route: 048
     Dates: start: 20210419
  11. SCOPOLAMINE PCH [Concomitant]
     Dosage: 1 MILLIGRAM Q3D
     Route: 061
     Dates: start: 20210513

REACTIONS (1)
  - Vomiting [Recovered/Resolved]

NARRATIVE: CASE EVENT DATE: 20210518
